FAERS Safety Report 9021902 (Version 1)
Quarter: 2013Q1

REPORT INFORMATION
  Report Type: Report from Study
  Country: CA (occurrence: CA)
  Receive Date: 20130118
  Receipt Date: 20130118
  Transmission Date: 20140127
  Serious: Yes (Other)
  Sender: FDA-Public Use
  Company Number: CA-JNJFOC-20130105929

PATIENT
  Sex: Female
  Weight: 70.5 kg

DRUGS (3)
  1. REMICADE [Suspect]
     Indication: CROHN^S DISEASE
     Route: 042
     Dates: start: 20101229
  2. PENTASA [Concomitant]
     Route: 065
  3. SOLUCORTEF [Concomitant]
     Indication: PREMEDICATION
     Route: 042

REACTIONS (1)
  - Biopsy breast abnormal [Not Recovered/Not Resolved]
